FAERS Safety Report 8058229-X (Version None)
Quarter: 2012Q1

REPORT INFORMATION
  Report Type: 
  Country: None (occurrence: None)
  Receive Date: 20120111
  Receipt Date: 20120104
  Transmission Date: 20120608
  Serious: Yes (Death, Hospitalization)
  Sender: FDA-Public Use
  Company Number: 2011SP053950

PATIENT
  Age: 17 Year
  Sex: Female

DRUGS (1)
  1. DESOGESTREL AND ETHINYL ESTRADIOL [Suspect]
     Indication: CONTRACEPTION
     Dates: start: 20070101, end: 20071010

REACTIONS (3)
  - PULMONARY EMBOLISM [None]
  - EYE DISORDER [None]
  - MALAISE [None]
